FAERS Safety Report 14170866 (Version 1)
Quarter: 2017Q4

REPORT INFORMATION
  Report Type: Spontaneous
  Country: SE (occurrence: SE)
  Receive Date: 20171108
  Receipt Date: 20171108
  Transmission Date: 20180321
  Serious: Yes (Other)
  Sender: FDA-Public Use
  Company Number: SE-TEVA-821374ROM

PATIENT
  Age: 24 Year
  Sex: Female

DRUGS (1)
  1. LAMOTRIGIN ACTAVIS 200 MG TABLETT [Suspect]
     Active Substance: LAMOTRIGINE
     Indication: BORDERLINE PERSONALITY DISORDER
     Route: 065
     Dates: start: 2014

REACTIONS (4)
  - Therapy change [None]
  - Cognitive disorder [Not Recovered/Not Resolved]
  - Memory impairment [None]
  - Aphasia [None]

NARRATIVE: CASE EVENT DATE: 2014
